FAERS Safety Report 22196727 (Version 1)
Quarter: 2023Q2

REPORT INFORMATION
  Report Type: Spontaneous
  Country: FR (occurrence: FR)
  Receive Date: 20230411
  Receipt Date: 20230411
  Transmission Date: 20230722
  Serious: Yes (Other)
  Sender: FDA-Public Use
  Company Number: None

PATIENT
  Age: 62 Year
  Sex: Male
  Weight: 96 kg

DRUGS (5)
  1. VANCOMYCIN [Suspect]
     Active Substance: VANCOMYCIN
     Indication: Sepsis
     Dosage: 3 GRAM, QD (1.5G X 2/D)
     Route: 042
     Dates: start: 20221115, end: 20221121
  2. VORICONAZOLE [Suspect]
     Active Substance: VORICONAZOLE
     Indication: Product used for unknown indication
     Dosage: 600 MILLIGRAM, QD
     Route: 048
     Dates: start: 20221115, end: 20221124
  3. ONDANSETRON HYDROCHLORIDE [Suspect]
     Active Substance: ONDANSETRON HYDROCHLORIDE
     Indication: Antiemetic supportive care
     Dosage: 8 MILLIGRAM, QD
     Route: 042
     Dates: start: 20221115, end: 20221120
  4. SULFADIAZINE [Suspect]
     Active Substance: SULFADIAZINE
     Indication: Toxoplasmosis
     Dosage: QD (BETWEEN 1G AND 4G PER DAY)
     Route: 048
     Dates: start: 20221113, end: 20221122
  5. CLADRIBINE [Suspect]
     Active Substance: CLADRIBINE
     Indication: Hairy cell leukaemia
     Dosage: 12 MILLIGRAM, QD
     Route: 042
     Dates: start: 20221115, end: 20221119

REACTIONS (4)
  - Oedema peripheral [Recovered/Resolved]
  - Purpura [Recovered/Resolved]
  - Rash maculo-papular [Recovered/Resolved]
  - Pruritus [Recovered/Resolved]

NARRATIVE: CASE EVENT DATE: 20221101
